FAERS Safety Report 19272186 (Version 1)
Quarter: 2021Q2

REPORT INFORMATION
  Report Type: Spontaneous
  Country: FR (occurrence: FR)
  Receive Date: 20210518
  Receipt Date: 20210518
  Transmission Date: 20210717
  Serious: Yes (Hospitalization, Other)
  Sender: FDA-Public Use
  Company Number: FR-LUNDBECK-DKLU3033134

PATIENT
  Age: 60 Year
  Sex: Female
  Weight: 55 kg

DRUGS (2)
  1. URBANYL [Suspect]
     Active Substance: CLOBAZAM
     Indication: INTENTIONAL OVERDOSE
     Route: 048
     Dates: start: 20210321, end: 20210321
  2. OXAZEPAM. [Suspect]
     Active Substance: OXAZEPAM
     Indication: INTENTIONAL OVERDOSE
     Route: 048
     Dates: start: 20210321, end: 20210321

REACTIONS (3)
  - Coma [Recovering/Resolving]
  - Pneumonia aspiration [Recovering/Resolving]
  - Poisoning deliberate [Unknown]
